FAERS Safety Report 5309611-2 (Version None)
Quarter: 2007Q2

REPORT INFORMATION
  Report Type: 
  Country: None (occurrence: None)
  Receive Date: 20070427
  Receipt Date: 20070423
  Transmission Date: 20071010
  Serious: Yes (Hospitalization, Other)
  Sender: FDA-Public Use
  Company Number: BR-BRISTOL-MYERS SQUIBB COMPANY-13751706

PATIENT
  Age: 69 Year
  Sex: Female

DRUGS (3)
  1. IRBESARTAN [Suspect]
     Indication: CARDIAC FAILURE
     Dosage: PT TOOK 300 MG 18-APR-2005 THROUGH 19-FEB-2007
     Route: 048
     Dates: start: 20070301, end: 20070422
  2. BLINDED: PLACEBO [Suspect]
     Indication: CARDIAC FAILURE
     Dates: start: 20070301, end: 20070422
  3. WARFARIN SODIUM [Concomitant]
     Dates: start: 20050401, end: 20070422

REACTIONS (7)
  - CARDIAC FAILURE [None]
  - CARDIOGENIC SHOCK [None]
  - CONDITION AGGRAVATED [None]
  - HYPOTENSION [None]
  - RENAL FAILURE [None]
  - RENAL IMPAIRMENT [None]
  - RESPIRATORY DISTRESS [None]
